FAERS Safety Report 12256492 (Version 2)
Quarter: 2016Q3

REPORT INFORMATION
  Report Type: Spontaneous
  Country: CH (occurrence: CH)
  Receive Date: 20160412
  Receipt Date: 20160707
  Transmission Date: 20161109
  Serious: Yes (Death)
  Sender: FDA-Public Use
  Company Number: PHHY2016CH047803

PATIENT
  Age: 68 Year

DRUGS (1)
  1. HYCAMTIN [Suspect]
     Active Substance: TOPOTECAN HYDROCHLORIDE
     Indication: SMALL CELL CARCINOMA
     Route: 065

REACTIONS (3)
  - Malignant neoplasm progression [Fatal]
  - Product use issue [Unknown]
  - Small cell carcinoma [Fatal]
